FAERS Safety Report 24875011 (Version 1)
Quarter: 2025Q1

REPORT INFORMATION
  Report Type: Spontaneous
  Country: AT (occurrence: AT)
  Receive Date: 20250122
  Receipt Date: 20250122
  Transmission Date: 20250408
  Serious: Yes (Other)
  Sender: ASTELLAS
  Company Number: AT-ASTELLAS-2025-AER-003986

PATIENT
  Age: 63 Year
  Sex: Male

DRUGS (4)
  1. ENZALUTAMIDE [Suspect]
     Active Substance: ENZALUTAMIDE
     Indication: Prostate cancer
     Route: 065
     Dates: start: 20240801
  2. TALZENNA [Suspect]
     Active Substance: TALAZOPARIB TOSYLATE
     Indication: Prostate cancer
     Route: 065
     Dates: start: 20241107
  3. TALZENNA [Suspect]
     Active Substance: TALAZOPARIB TOSYLATE
     Route: 065
     Dates: start: 20250116
  4. TALZENNA [Suspect]
     Active Substance: TALAZOPARIB TOSYLATE
     Dosage: 0.25MGX2
     Route: 065
     Dates: start: 20240801, end: 20241026

REACTIONS (1)
  - Anaemia [Unknown]
